FAERS Safety Report 8180876-5 (Version None)
Quarter: 2012Q1

REPORT INFORMATION
  Report Type: 
  Country: None (occurrence: None)
  Receive Date: 20120301
  Receipt Date: 20120301
  Transmission Date: 20120608
  Serious: No
  Sender: FDA-Public Use
  Company Number: None

PATIENT
  Age: 64 Year
  Sex: Male
  Weight: 81.6475 kg

DRUGS (1)
  1. SIMVASTATIN [Suspect]
     Dosage: 40 MG 1 PER DAY ORAL
     Route: 048

REACTIONS (2)
  - OSTEOARTHRITIS [None]
  - CONDITION AGGRAVATED [None]
